FAERS Safety Report 15308303 (Version 1)
Quarter: 2018Q3

REPORT INFORMATION
  Report Type: Spontaneous
  Country: AU (occurrence: AU)
  Receive Date: 20180822
  Receipt Date: 20180822
  Transmission Date: 20181010
  Serious: Yes (Hospitalization)
  Sender: FDA-Public Use
  Company Number: AU-PFIZER INC-2018316524

PATIENT
  Age: 79 Year
  Sex: Male

DRUGS (9)
  1. RITUXIMAB. [Suspect]
     Active Substance: RITUXIMAB
     Dosage: UNK, CYCLIC COMPLETED CYCLES 3?6 OF R?MINICHOP CHEMOTHERAPY (CYCLE 8 OF RITUXIMAB ALONE)
  2. RITUXIMAB. [Suspect]
     Active Substance: RITUXIMAB
     Indication: DIFFUSE LARGE B-CELL LYMPHOMA STAGE IV
     Dosage: 375 MG/M2, CYCLIC (R?MINICHOP)
     Dates: end: 201709
  3. PREDNISOLONE. [Suspect]
     Active Substance: PREDNISOLONE
     Indication: DIFFUSE LARGE B-CELL LYMPHOMA STAGE IV
     Dosage: 40 MG/M2, CYCLIC, (ON DAYS 1?5 OF THE 21?DAY CYCLE 6 WEEKS EARLIER)
     Dates: end: 201709
  4. METHOTREXATE. [Concomitant]
     Active Substance: METHOTREXATE
     Dosage: UNK, CYCLIC (CYCLE 7 OF METHOTREXATE AND RITUXIMAB)
     Dates: end: 201709
  5. DOXORUBICIN HCL [Suspect]
     Active Substance: DOXORUBICIN HYDROCHLORIDE
     Indication: DIFFUSE LARGE B-CELL LYMPHOMA STAGE IV
     Dosage: 25 MG/M2, CYCLIC (R?MINICHOP) COMPLETED CYCLES 3?6 OF R?MINICHOP CHEMOTHERAPY
     Dates: end: 201709
  6. VINCRISTINE SULFATE. [Suspect]
     Active Substance: VINCRISTINE SULFATE
     Indication: DIFFUSE LARGE B-CELL LYMPHOMA STAGE IV
     Dosage: 1 MG, CYCLIC (ON DAY 1) COMPLETED CYCLES 3?6 OF R?MINICHOP CHEMOTHERAPY
     Route: 042
     Dates: end: 201709
  7. CYCLOPHOSPHAMIDE. [Suspect]
     Active Substance: CYCLOPHOSPHAMIDE
     Indication: DIFFUSE LARGE B-CELL LYMPHOMA STAGE IV
     Dosage: 400 MG/M2, CYCLIC, COMPLETED CYCLES 3?6 OF R?MINICHOP CHEMOTHERAPY (R?MINICHOP,)
     Dates: end: 201709
  8. IBRUTINIB [Suspect]
     Active Substance: IBRUTINIB
     Indication: DIFFUSE LARGE B-CELL LYMPHOMA STAGE IV
     Dosage: 560 MG, DAILY (DAILY FOR THE PRECEDING 6 WEEKS.)
     Route: 048
     Dates: end: 201709
  9. ISONIAZID. [Concomitant]
     Active Substance: ISONIAZID
     Indication: TUBERCULOSIS
     Dosage: 300 MG, DAILY
     Route: 048
     Dates: end: 201709

REACTIONS (6)
  - Cryptococcosis [Unknown]
  - Lung consolidation [Unknown]
  - Atelectasis [Unknown]
  - Pneumothorax [Unknown]
  - Empyema [Unknown]
  - Pleural effusion [Unknown]

NARRATIVE: CASE EVENT DATE: 2017
